FAERS Safety Report 19475935 (Version 1)
Quarter: 2021Q2

REPORT INFORMATION
  Report Type: Spontaneous
  Country: SE (occurrence: SE)
  Receive Date: 20210630
  Receipt Date: 20210630
  Transmission Date: 20210717
  Serious: Yes (Hospitalization)
  Sender: FDA-Public Use
  Company Number: SE-TEVA-2021-SE-1927314

PATIENT
  Age: 32 Year
  Sex: Female

DRUGS (5)
  1. METRONIDAZOLE. [Suspect]
     Active Substance: METRONIDAZOLE
     Indication: IRRITABLE BOWEL SYNDROME
     Dosage: 1200 MILLIGRAM DAILY;
     Route: 065
  2. FLUCLOXACILLIN [Suspect]
     Active Substance: FLUCLOXACILLIN
     Indication: SKIN BACTERIAL INFECTION
     Dosage: 3 TIMES DAILY
     Route: 065
  3. RIFAXIMIN. [Suspect]
     Active Substance: RIFAXIMIN
     Indication: IRRITABLE BOWEL SYNDROME
     Dosage: 3 TIMES DAILY
     Route: 065
  4. PHENOXYMETHYLPENICILLIN [Suspect]
     Active Substance: PENICILLIN V
     Indication: ENDOMETRITIS
     Dosage: SCHEDULED FOR 10 DAYS
     Route: 065
  5. CHOLESTYRAMINE. [Suspect]
     Active Substance: CHOLESTYRAMINE
     Indication: IRRITABLE BOWEL SYNDROME
     Route: 065

REACTIONS (2)
  - Irritable bowel syndrome [Recovered/Resolved]
  - Drug ineffective [Unknown]
